FAERS Safety Report 9804158 (Version 1)
Quarter: 2014Q1

REPORT INFORMATION
  Report Type: Spontaneous
  Country: TR (occurrence: TR)
  Receive Date: 20140108
  Receipt Date: 20140108
  Transmission Date: 20141002
  Serious: Yes (Other)
  Sender: FDA-Public Use
  Company Number: PHHY2013TR154835

PATIENT
  Age: 36 Year
  Sex: Female

DRUGS (2)
  1. VALPROIC ACID [Suspect]
     Dosage: 100 MG, DAILY
  2. RISPERIDONE [Concomitant]
     Dosage: 3 MG, DAILY

REACTIONS (9)
  - Alkalosis hypokalaemic [Recovered/Resolved]
  - Hyperammonaemic encephalopathy [Unknown]
  - Delirium [Recovered/Resolved]
  - Lethargy [Unknown]
  - Apathy [Unknown]
  - Confusional state [Unknown]
  - Disorientation [Unknown]
  - Ammonia increased [Recovering/Resolving]
  - Blood potassium decreased [Recovered/Resolved]
